FAERS Safety Report 23779904 (Version 1)
Quarter: 2024Q2

REPORT INFORMATION
  Report Type: Spontaneous
  Country: US (occurrence: US)
  Receive Date: 20240424
  Receipt Date: 20240424
  Transmission Date: 20240715
  Serious: No
  Sender: FDA-Public Use
  Company Number: US-NEUROCRINE BIOSCIENCES INC.-2024NBI03834

PATIENT
  Age: 3 Decade
  Sex: Male

DRUGS (1)
  1. INGREZZA [Suspect]
     Active Substance: VALBENAZINE
     Indication: Tardive dyskinesia
     Dosage: UNK, UNKNOWN
     Route: 065

REACTIONS (1)
  - Parkinsonism [Unknown]
